FAERS Safety Report 9227922 (Version 1)
Quarter: 2013Q2

REPORT INFORMATION
  Report Type: Spontaneous
  Country: US (occurrence: US)
  Receive Date: 20130412
  Receipt Date: 20130412
  Transmission Date: 20140414
  Serious: Yes (Death)
  Sender: FDA-Public Use
  Company Number: US-OTSUKA-US-2013-10598

PATIENT
  Sex: Female

DRUGS (2)
  1. SAMSCA [Suspect]
     Indication: HYPOKALAEMIC SYNDROME
     Dosage: UNK, DAILY DOSE
     Dates: start: 201302, end: 201303
  2. SAMSCA [Suspect]
     Indication: HYPONATRAEMIC SYNDROME

REACTIONS (1)
  - Death [Fatal]
